FAERS Safety Report 8121920-0 (Version None)
Quarter: 2012Q1

REPORT INFORMATION
  Report Type: 
  Country: None (occurrence: None)
  Receive Date: 20120208
  Receipt Date: 20120203
  Transmission Date: 20120608
  Serious: Yes (Other)
  Sender: FDA-Public Use
  Company Number: US-PFIZER INC-2012012204

PATIENT
  Sex: Female
  Weight: 74.8 kg

DRUGS (6)
  1. LYRICA [Suspect]
     Indication: HERPES ZOSTER
     Dosage: 50 MG, 1X/DAY
     Route: 048
     Dates: start: 20070901
  2. LOZOL [Concomitant]
     Indication: HYPERTENSION
     Dosage: UNK
     Dates: start: 20090126
  3. LYRICA [Suspect]
     Indication: NEUROPATHY PERIPHERAL
     Dosage: UNK
     Route: 048
     Dates: start: 20071008
  4. WELCHOL [Concomitant]
     Indication: LIPIDS
  5. LYRICA [Suspect]
     Indication: POST HERPETIC NEURALGIA
  6. WELCHOL [Concomitant]
     Indication: BLOOD CHOLESTEROL INCREASED
     Dosage: UNK
     Dates: start: 20091026

REACTIONS (1)
  - MENISCUS LESION [None]
